FAERS Safety Report 23569013 (Version 3)
Quarter: 2024Q4

REPORT INFORMATION
  Report Type: Report from Study
  Country: US (occurrence: US)
  Receive Date: 20240227
  Receipt Date: 20241211
  Transmission Date: 20250114
  Serious: Yes (Other)
  Sender: ABBVIE
  Company Number: US-ABBVIE-5650293

PATIENT
  Age: 63 Year
  Sex: Female

DRUGS (5)
  1. SKYRIZI [Suspect]
     Active Substance: RISANKIZUMAB-RZAA
     Indication: Crohn^s disease
     Dosage: LAST ADMIN DATE: 2023
     Route: 058
     Dates: start: 20231005
  2. SKYRIZI [Suspect]
     Active Substance: RISANKIZUMAB-RZAA
     Indication: Crohn^s disease
     Dosage: TIME INTERVAL: TOTAL: WEEK 4
     Route: 042
     Dates: start: 20231102, end: 20231102
  3. SKYRIZI [Suspect]
     Active Substance: RISANKIZUMAB-RZAA
     Indication: Crohn^s disease
     Dosage: TIME INTERVAL: TOTAL: WEEK 0
     Route: 042
     Dates: start: 202310, end: 202310
  4. SKYRIZI [Suspect]
     Active Substance: RISANKIZUMAB-RZAA
     Indication: Crohn^s disease
     Dosage: TIME INTERVAL: TOTAL: WEEK 8
     Route: 042
     Dates: start: 2023, end: 2023
  5. MESALAMINE [Concomitant]
     Active Substance: MESALAMINE
     Indication: Product used for unknown indication

REACTIONS (7)
  - Abscess [Recovering/Resolving]
  - Inflammation [Recovering/Resolving]
  - Colitis [Recovering/Resolving]
  - Fistula inflammation [Recovering/Resolving]
  - Colitis ulcerative [Unknown]
  - Fistula [Recovering/Resolving]
  - Abdominal pain upper [Recovering/Resolving]

NARRATIVE: CASE EVENT DATE: 20231101
